FAERS Safety Report 25824969 (Version 2)
Quarter: 2025Q4

REPORT INFORMATION
  Report Type: Spontaneous
  Country: EU (occurrence: EU)
  Receive Date: 20250919
  Receipt Date: 20251001
  Transmission Date: 20260118
  Serious: Yes (Hospitalization)
  Sender: BAUSCH AND LOMB
  Company Number: EU-BAUSCH-BH-2025-017556

PATIENT
  Age: 27 Year
  Sex: Male
  Weight: 70 kg

DRUGS (1)
  1. AZATHIOPRINE [Suspect]
     Active Substance: AZATHIOPRINE
     Indication: Cutaneous vasculitis
     Dosage: 2-3 YEARS, FROM MAY 2014 TO APPROX. END OF 2016 OR 2017
     Route: 048
     Dates: start: 201405

REACTIONS (5)
  - Ileal ulcer [Recovered/Resolved]
  - Gastrointestinal haemorrhage [Recovered/Resolved]
  - Myelosuppression [Recovered/Resolved]
  - Aplastic anaemia [Recovered/Resolved]
  - Hepatosplenic T-cell lymphoma [Recovered/Resolved]

NARRATIVE: CASE EVENT DATE: 20200101
